FAERS Safety Report 10098434 (Version 1)
Quarter: 2014Q2

REPORT INFORMATION
  Report Type: Spontaneous
  Country: ES (occurrence: None)
  Receive Date: 20140421
  Receipt Date: 20140421
  Transmission Date: 20141212
  Serious: Yes (Other)
  Sender: FDA-Public Use
  Company Number: 2014P1003115

PATIENT
  Age: 69 Year
  Sex: Female

DRUGS (1)
  1. ENALAPRIL [Suspect]

REACTIONS (2)
  - Drug interaction [None]
  - Dermatitis contact [None]
